FAERS Safety Report 6422115-9 (Version None)
Quarter: 2009Q4

REPORT INFORMATION
  Report Type: 
  Country: None (occurrence: None)
  Receive Date: 20091030
  Receipt Date: 20090910
  Transmission Date: 20100525
  Serious: Yes (Other)
  Sender: FDA-Public Use
  Company Number: JP-PFIZER INC-2009247329

PATIENT
  Age: 66 Year

DRUGS (14)
  1. CARDENALIN [Suspect]
     Indication: HYPERTENSION
     Dosage: 4 MG, 2X/DAY
     Route: 048
  2. CARDENALIN [Suspect]
     Dosage: 4 MG, 2X/DAY, EVERY DAY
  3. AMLODIPINE BESYLATE [Suspect]
     Indication: HYPERTENSION
     Dosage: 2.5 MG, 2X/DAY, EVERYDAY
     Route: 048
  4. TELMISARTAN [Suspect]
     Indication: HYPERTENSION
     Dosage: 40 MG, DAILY, EVERYDAY
     Route: 048
     Dates: end: 20090601
  5. CLONAZEPAM [Suspect]
     Indication: RESTLESS LEGS SYNDROME
     Dosage: 0.5 MG, DAILY, EVERYDAY
     Route: 048
     Dates: start: 20081121
  6. LANSOPRAZOLE [Concomitant]
     Dosage: UNK
     Route: 048
  7. CLARITIN [Concomitant]
     Dosage: UNK
     Route: 048
  8. ASPIRIN [Concomitant]
     Dosage: UNK
     Route: 048
  9. PLAVIX [Concomitant]
     Dosage: UNK
     Route: 048
  10. ADALAT [Concomitant]
     Dosage: UNK
     Route: 048
     Dates: start: 20081121
  11. PLETAL [Concomitant]
     Dosage: UNK
     Route: 048
     Dates: start: 20081121
  12. LASIX [Concomitant]
     Dosage: UNK
     Route: 048
     Dates: start: 20081121
  13. BENZALIN [Concomitant]
     Dosage: UNK
     Route: 048
     Dates: start: 20081121, end: 20090619
  14. DARBEPOETIN ALFA [Concomitant]
     Dosage: UNK
     Route: 042
     Dates: start: 20090529

REACTIONS (2)
  - RESTLESS LEGS SYNDROME [None]
  - RHABDOMYOLYSIS [None]
